FAERS Safety Report 9436682 (Version 1)
Quarter: 2013Q3

REPORT INFORMATION
  Report Type: Spontaneous
  Country: BR (occurrence: BR)
  Receive Date: 20130802
  Receipt Date: 20130802
  Transmission Date: 20140515
  Serious: Yes (Other)
  Sender: FDA-Public Use
  Company Number: BR-ASTRAZENECA-2013SE57000

PATIENT
  Age: 698 Month
  Sex: Female
  Weight: 64 kg

DRUGS (5)
  1. ATACAND [Suspect]
     Indication: HYPERTENSION
     Dosage: EVERY MORNING
     Route: 048
     Dates: start: 2009
  2. ATACAND [Suspect]
     Indication: HYPERTENSION
     Route: 048
     Dates: start: 20130724, end: 20130724
  3. ANCORON [Concomitant]
     Indication: HEART RATE ABNORMAL
     Dates: start: 201306
  4. RIVOTRIL [Concomitant]
     Indication: ANXIETY
     Dosage: AS REQUIRED
  5. TRAVATAN [Concomitant]
     Indication: GLAUCOMA
     Dosage: DAILY
     Dates: start: 201303

REACTIONS (5)
  - Blood pressure increased [Recovered/Resolved]
  - Glaucoma [Unknown]
  - Heart rate irregular [Recovered/Resolved]
  - Intentional drug misuse [Recovered/Resolved]
  - Drug ineffective [Unknown]
